FAERS Safety Report 20289311 (Version 1)
Quarter: 2022Q1

REPORT INFORMATION
  Report Type: Report from Study
  Country: TW (occurrence: TW)
  Receive Date: 20220104
  Receipt Date: 20220104
  Transmission Date: 20220424
  Serious: Yes (Other)
  Sender: FDA-Public Use
  Company Number: TW-NOVARTISPH-NVSC2021TW297264

PATIENT
  Sex: Male

DRUGS (10)
  1. COSENTYX [Suspect]
     Active Substance: SECUKINUMAB
     Indication: Ankylosing spondylitis
     Dosage: 150 MG, PRN
     Route: 058
     Dates: start: 20200104
  2. METHYLCOBALAMIN [Concomitant]
     Active Substance: METHYLCOBALAMIN
     Indication: Product used for unknown indication
     Dosage: 500 UG, BID
     Route: 048
  3. AMLODIPINE BESYLATE\OLMESARTAN MEDOXOMIL [Concomitant]
     Active Substance: AMLODIPINE BESYLATE\OLMESARTAN MEDOXOMIL
     Indication: Product used for unknown indication
     Dosage: UNK, QD
     Route: 048
  4. DIPYRIDAMOLE [Concomitant]
     Active Substance: DIPYRIDAMOLE
     Indication: Product used for unknown indication
     Dosage: 25 MG, BID
     Route: 048
  5. ATORVASTATIN [Concomitant]
     Active Substance: ATORVASTATIN
     Indication: Product used for unknown indication
     Dosage: 10 MG, QD
     Route: 048
  6. FUBIFEN PAP [Concomitant]
     Indication: Product used for unknown indication
     Dosage: UNK, BID(PATCH)
     Route: 065
  7. SULFASALAZINE [Concomitant]
     Active Substance: SULFASALAZINE
     Indication: Product used for unknown indication
     Dosage: 500 MG, BID
     Route: 048
  8. PREGABALIN [Concomitant]
     Active Substance: PREGABALIN
     Indication: Product used for unknown indication
     Dosage: 75 MG, BID
     Route: 048
  9. FLUTICASONE FUROATE [Concomitant]
     Active Substance: FLUTICASONE FUROATE
     Indication: Product used for unknown indication
     Dosage: UNK, QD(NASAL SPRAY) SUSPENSION
     Route: 045
  10. CALCIUM [Concomitant]
     Active Substance: CALCIUM
     Indication: Product used for unknown indication
     Dosage: 10 ML, QD(ALL-RIGHT CALCIUM) SUSPENSION
     Route: 048

REACTIONS (10)
  - Hepatitis [Unknown]
  - Neuropathy peripheral [Unknown]
  - Mycobacterium tuberculosis complex test positive [Unknown]
  - Cough [Unknown]
  - Rhinitis allergic [Unknown]
  - Dyslipidaemia [Unknown]
  - Enthesopathy [Unknown]
  - Low density lipoprotein increased [Unknown]
  - Joint range of motion decreased [Unknown]
  - Joint noise [Unknown]
